FAERS Safety Report 17912501 (Version 1)
Quarter: 2020Q2

REPORT INFORMATION
  Report Type: Spontaneous
  Country: ES (occurrence: ES)
  Receive Date: 20200618
  Receipt Date: 20200618
  Transmission Date: 20200714
  Serious: Yes (Hospitalization, Other)
  Sender: FDA-Public Use
  Company Number: ES-PFIZER INC-2020235488

PATIENT
  Age: 69 Year
  Sex: Male

DRUGS (8)
  1. CLOPIDOGREL TEVA PHARMA [Concomitant]
     Dosage: 75 MG, DAILY
     Route: 048
  2. PREDNISONA CINFA [Concomitant]
     Active Substance: PREDNISONE
     Dosage: 30 MG, DAILY
     Route: 048
  3. ATORVASTATIN CALCIUM. [Suspect]
     Active Substance: ATORVASTATIN CALCIUM
     Dosage: 40 MG, DAILY
     Route: 048
     Dates: start: 20200228, end: 20200425
  4. RAMIPRIL. [Concomitant]
     Active Substance: RAMIPRIL
     Dosage: 2.5 MG, DAILY
     Route: 048
  5. PANTOPRAZOL NORMON [Concomitant]
     Dosage: 20 MG, DAILY
     Route: 048
  6. OSVICAL D [Concomitant]
     Dosage: 1 DF, DAILY
     Route: 048
  7. SPIRONOLACTONE. [Concomitant]
     Active Substance: SPIRONOLACTONE
     Dosage: 25 MG, DAILY
     Route: 048
  8. FUROSEMIDA KERN PHARMA [Concomitant]
     Dosage: 40 MG, 2X/DAY (EVERY 12 HOURS)
     Route: 048

REACTIONS (3)
  - Hypertransaminasaemia [Recovering/Resolving]
  - Blood bilirubin increased [Recovering/Resolving]
  - Gamma-glutamyltransferase increased [Recovering/Resolving]

NARRATIVE: CASE EVENT DATE: 20200421
